FAERS Safety Report 4448603-2 (Version None)
Quarter: 2004Q3

REPORT INFORMATION
  Report Type: 
  Country: None (occurrence: None)
  Receive Date: 20040909
  Receipt Date: 20040816
  Transmission Date: 20050211
  Serious: Yes (Hospitalization, Other)
  Sender: FDA-Public Use
  Company Number: GBS040815453

PATIENT
  Age: 56 Year
  Sex: Female

DRUGS (5)
  1. HUMULIN 70/30 [Suspect]
     Indication: DIABETES MELLITUS
     Dates: start: 19990101
  2. METFORMIN HCL [Concomitant]
  3. LIPOSTAT (PRAVASTATIN SODIUM) [Concomitant]
  4. ENALAPRIL [Concomitant]
  5. ASPIRIN [Concomitant]

REACTIONS (8)
  - BLADDER OPERATION [None]
  - BLOOD GLUCOSE INCREASED [None]
  - LOSS OF CONSCIOUSNESS [None]
  - MEDICAL DEVICE COMPLICATION [None]
  - OEDEMA PERIPHERAL [None]
  - PHARMACEUTICAL PRODUCT COMPLAINT [None]
  - POST PROCEDURAL COMPLICATION [None]
  - TENDONITIS [None]
